FAERS Safety Report 22065726 (Version 1)
Quarter: 2023Q1

REPORT INFORMATION
  Report Type: Spontaneous
  Country: US (occurrence: US)
  Receive Date: 20230306
  Receipt Date: 20230306
  Transmission Date: 20230418
  Serious: Yes (Other)
  Sender: FDA-Public Use
  Company Number: US-Blueprint Medicines Corporation-913

PATIENT
  Sex: Male

DRUGS (1)
  1. AYVAKIT [Suspect]
     Active Substance: AVAPRITINIB
     Indication: Gastrointestinal stromal tumour
     Route: 065
     Dates: start: 20221019

REACTIONS (6)
  - Neoplasm progression [Unknown]
  - Metastases to liver [Unknown]
  - Metastases to pelvis [Unknown]
  - Gastrointestinal disorder [Unknown]
  - Dysuria [Unknown]
  - Dyschezia [Unknown]
